FAERS Safety Report 11309051 (Version 1)
Quarter: 2015Q3

REPORT INFORMATION
  Report Type: Spontaneous
  Country: US (occurrence: US)
  Receive Date: 20150724
  Receipt Date: 20150724
  Transmission Date: 20151125
  Serious: Yes (Hospitalization)
  Sender: FDA-Public Use
  Company Number: US-TEVA-581195USA

PATIENT
  Age: 4 Month
  Sex: Male
  Weight: 5.78 kg

DRUGS (1)
  1. AMOXICILLIN. [Suspect]
     Active Substance: AMOXICILLIN
     Indication: PNEUMONIA
     Route: 065

REACTIONS (7)
  - Hepatosplenomegaly [Unknown]
  - Chronic granulomatous disease [Recovering/Resolving]
  - Weight decreased [Unknown]
  - Combined immunodeficiency [Unknown]
  - Pneumonia [Unknown]
  - Anaemia [Unknown]
  - Drug resistance [Unknown]
